FAERS Safety Report 13301345 (Version 1)
Quarter: 2017Q1

REPORT INFORMATION
  Report Type: Spontaneous
  Country: US (occurrence: US)
  Receive Date: 20170307
  Receipt Date: 20170307
  Transmission Date: 20170428
  Serious: No
  Sender: FDA-Public Use
  Company Number: US-PFIZER INC-2017095212

PATIENT
  Sex: Male

DRUGS (1)
  1. XELJANZ XR [Suspect]
     Active Substance: TOFACITINIB CITRATE
     Dosage: 11 MG, UNK

REACTIONS (9)
  - Musculoskeletal stiffness [Unknown]
  - Chest pain [Unknown]
  - Arthralgia [Unknown]
  - Visual impairment [Unknown]
  - Skin lesion [Unknown]
  - Abdominal pain [Unknown]
  - Cough [Unknown]
  - Oedema [Unknown]
  - Fatigue [Unknown]
